FAERS Safety Report 4465063-6 (Version None)
Quarter: 2004Q3

REPORT INFORMATION
  Report Type: 
  Country: None (occurrence: None)
  Receive Date: 20040929
  Receipt Date: 20040915
  Transmission Date: 20050211
  Serious: Yes (Hospitalization)
  Sender: FDA-Public Use
  Company Number: US_0409105487

PATIENT
  Age: 23 Year
  Sex: Female
  Weight: 105 kg

DRUGS (2)
  1. SEMI-LENTE ILETIN INSULIN [Suspect]
     Indication: DIABETES MELLITUS
     Dates: start: 19650101
  2. ULTRALENTE INSULIN [Suspect]
     Indication: DIABETES MELLITUS
     Dates: start: 19650101

REACTIONS (6)
  - CAESAREAN SECTION [None]
  - DRUG EXPOSURE DURING PREGNANCY [None]
  - DRUG EXPOSURE VIA BREAST MILK [None]
  - PREGNANCY [None]
  - PREMATURE BABY [None]
  - PREMATURE LABOUR [None]
